FAERS Safety Report 7603671-1 (Version None)
Quarter: 2011Q2

REPORT INFORMATION
  Report Type: 
  Country: None (occurrence: None)
  Receive Date: 20110629
  Receipt Date: 20110614
  Transmission Date: 20111010
  Serious: Yes (Other)
  Sender: FDA-Public Use
  Company Number: B0727721A

PATIENT
  Age: 37 Year

DRUGS (1)
  1. MELPHALAN INJECTION (GENERIC) (MELPHALAN) [Suspect]
     Indication: ACUTE MYELOID LEUKAEMIA
     Dosage: 200 MG/M2 / SINGLE DOSE / INTRAVENOUS
     Route: 042

REACTIONS (4)
  - INTERSTITIAL LUNG DISEASE [None]
  - FEBRILE NEUTROPENIA [None]
  - PNEUMONIA CYTOMEGALOVIRAL [None]
  - PNEUMONITIS [None]
